FAERS Safety Report 19176758 (Version 1)
Quarter: 2021Q2

REPORT INFORMATION
  Report Type: Spontaneous
  Country: US (occurrence: US)
  Receive Date: 20210424
  Receipt Date: 20210424
  Transmission Date: 20210717
  Serious: Yes (Hospitalization, Other)
  Sender: FDA-Public Use
  Company Number: US-ABBVIE-21K-163-3874224-00

PATIENT
  Age: 65 Year
  Sex: Female
  Weight: 70.3 kg

DRUGS (21)
  1. HUMIRA [Suspect]
     Active Substance: ADALIMUMAB
     Indication: PRODUCT USED FOR UNKNOWN INDICATION
     Route: 058
  2. IRON [Suspect]
     Active Substance: IRON
     Indication: PRODUCT USED FOR UNKNOWN INDICATION
     Route: 065
  3. TRILEPTAL [Suspect]
     Active Substance: OXCARBAZEPINE
     Indication: PRODUCT USED FOR UNKNOWN INDICATION
     Route: 065
  4. NEXIUM [Concomitant]
     Active Substance: ESOMEPRAZOLE MAGNESIUM
     Indication: PRODUCT USED FOR UNKNOWN INDICATION
  5. LASIX [Suspect]
     Active Substance: FUROSEMIDE
     Indication: PRODUCT USED FOR UNKNOWN INDICATION
     Route: 065
  6. PLAQUENIL [Suspect]
     Active Substance: HYDROXYCHLOROQUINE SULFATE
     Indication: PRODUCT USED FOR UNKNOWN INDICATION
     Route: 065
  7. LAMICTAL [Concomitant]
     Active Substance: LAMOTRIGINE
     Indication: PRODUCT USED FOR UNKNOWN INDICATION
  8. MEDIQUE DIAMODE [Concomitant]
     Active Substance: LOPERAMIDE HYDROCHLORIDE
     Indication: PRODUCT USED FOR UNKNOWN INDICATION
  9. FLU VACCINE VII [Concomitant]
     Active Substance: INFLUENZA VIRUS VACCINE
     Indication: PRODUCT USED FOR UNKNOWN INDICATION
     Dates: start: 20140214
  10. POTASSIUM CANRENOATE [Suspect]
     Active Substance: CANRENOATE POTASSIUM
     Indication: PRODUCT USED FOR UNKNOWN INDICATION
     Route: 065
  11. MOBIC [Concomitant]
     Active Substance: MELOXICAM
     Indication: PRODUCT USED FOR UNKNOWN INDICATION
  12. ISOPTO TEARS [Concomitant]
     Active Substance: HYPROMELLOSE 2910 (4000 MPA.S)
     Indication: PRODUCT USED FOR UNKNOWN INDICATION
  13. SULFASALAZINE. [Suspect]
     Active Substance: SULFASALAZINE
     Indication: PRODUCT USED FOR UNKNOWN INDICATION
     Route: 065
  14. METHOTREXATE. [Suspect]
     Active Substance: METHOTREXATE
     Indication: PRODUCT USED FOR UNKNOWN INDICATION
     Route: 065
  15. SUDAFED [Suspect]
     Active Substance: PSEUDOEPHEDRINE HYDROCHLORIDE
     Indication: PRODUCT USED FOR UNKNOWN INDICATION
     Route: 065
  16. CALCIUM CARBONATE. [Concomitant]
     Active Substance: CALCIUM CARBONATE
     Indication: PRODUCT USED FOR UNKNOWN INDICATION
  17. ZANAFLEX [Concomitant]
     Active Substance: TIZANIDINE HYDROCHLORIDE
     Indication: PRODUCT USED FOR UNKNOWN INDICATION
  18. KEFLEX [Suspect]
     Active Substance: CEPHALEXIN
     Indication: PRODUCT USED FOR UNKNOWN INDICATION
     Route: 065
  19. ULTRAM [Suspect]
     Active Substance: TRAMADOL HYDROCHLORIDE
     Indication: PRODUCT USED FOR UNKNOWN INDICATION
     Route: 065
  20. RETIN?A [Concomitant]
     Active Substance: TRETINOIN
     Indication: PRODUCT USED FOR UNKNOWN INDICATION
  21. PNEUMOCOCCAL VACCINE POLYVALENT NOS [Concomitant]
     Active Substance: PNEUMOCOCCAL VACCINE POLYVALENT
     Indication: PRODUCT USED FOR UNKNOWN INDICATION
     Dates: start: 20141114

REACTIONS (57)
  - Loss of consciousness [Unknown]
  - Haemorrhagic diathesis [Unknown]
  - Rheumatoid arthritis [Unknown]
  - Skin disorder [Unknown]
  - Pain [Unknown]
  - Abdominal pain [Unknown]
  - Asthenia [Unknown]
  - Headache [Unknown]
  - Blister [Unknown]
  - Arthritis infective [Unknown]
  - Oral pain [Unknown]
  - Drug intolerance [Unknown]
  - Skin warm [Unknown]
  - Myalgia [Unknown]
  - Hypoaesthesia [Unknown]
  - Abdominal discomfort [Unknown]
  - Anaphylactic reaction [Unknown]
  - Nausea [Unknown]
  - Appetite disorder [Unknown]
  - Rhinorrhoea [Unknown]
  - Visual impairment [Unknown]
  - Dyspnoea [Unknown]
  - Musculoskeletal stiffness [Unknown]
  - Hallucination [Unknown]
  - Intestinal obstruction [Recovered/Resolved with Sequelae]
  - Oedema [Unknown]
  - Photophobia [Unknown]
  - Wheezing [Unknown]
  - Diarrhoea [Unknown]
  - Constipation [Unknown]
  - Contusion [Unknown]
  - Ear pain [Unknown]
  - Pruritus [Unknown]
  - Back pain [Unknown]
  - Arthralgia [Unknown]
  - Rash [Unknown]
  - Drug hypersensitivity [Unknown]
  - Adverse reaction [Recovered/Resolved]
  - Sjogren^s syndrome [Unknown]
  - Wound [Unknown]
  - Osteoarthritis [Unknown]
  - Fatigue [Unknown]
  - Neck pain [Unknown]
  - Thinking abnormal [Unknown]
  - Vomiting [Unknown]
  - Weight decreased [Recovered/Resolved]
  - Dry skin [Unknown]
  - Chills [Unknown]
  - Sneezing [Unknown]
  - Dizziness [Unknown]
  - Erythema [Unknown]
  - Dysphagia [Unknown]
  - Joint swelling [Unknown]
  - Gait disturbance [Unknown]
  - Dysphoria [Unknown]
  - Interstitial lung disease [Unknown]
  - Tenderness [Unknown]

NARRATIVE: CASE EVENT DATE: 201008
